FAERS Safety Report 11475030 (Version 3)
Quarter: 2015Q4

REPORT INFORMATION
  Report Type: Spontaneous
  Country: FR (occurrence: FR)
  Receive Date: 20150908
  Receipt Date: 20151016
  Transmission Date: 20160304
  Serious: Yes (Other)
  Sender: FDA-Public Use
  Company Number: FR-ALLERGAN-1517936US

PATIENT
  Age: 69 Year
  Sex: Male

DRUGS (1)
  1. LUMIGAN [Suspect]
     Active Substance: BIMATOPROST
     Indication: OCULAR HYPERTENSION
     Dosage: UNK
     Route: 047
     Dates: start: 20130201, end: 201508

REACTIONS (6)
  - Nasal obstruction [Recovered/Resolved]
  - Bronchitis chronic [Unknown]
  - Dry mouth [Recovered/Resolved]
  - Fatigue [Recovered/Resolved]
  - Chronic obstructive pulmonary disease [Unknown]
  - Nasopharyngitis [Unknown]

NARRATIVE: CASE EVENT DATE: 201303
